FAERS Safety Report 12370053 (Version 1)
Quarter: 2016Q2

REPORT INFORMATION
  Report Type: Spontaneous
  Country: IT (occurrence: None)
  Receive Date: 20160513
  Receipt Date: 20160513
  Transmission Date: 20160815
  Serious: Yes (Other)
  Sender: FDA-Public Use
  Company Number: IT2016K1924LIT

PATIENT
  Age: 35 Year
  Sex: Female

DRUGS (1)
  1. LANSOPRAZOLE WORLD (LANSOPRAZOLE) [Suspect]
     Active Substance: LANSOPRAZOLE
     Indication: GASTRITIS

REACTIONS (3)
  - Urticaria [None]
  - Pruritus generalised [None]
  - Product substitution issue [None]
